FAERS Safety Report 8611541-5 (Version None)
Quarter: 2012Q3

REPORT INFORMATION
  Report Type: 
  Country: None (occurrence: None)
  Receive Date: 20120822
  Receipt Date: 20120814
  Transmission Date: 20120928
  Serious: Yes (Other)
  Sender: FDA-Public Use
  Company Number: GXKR2012DE002684

PATIENT

DRUGS (1)
  1. TRAMADOL HCL [Suspect]
     Route: 065

REACTIONS (1)
  - PRODUCT TAMPERING [None]
